FAERS Safety Report 4445070-X (Version None)
Quarter: 2004Q3

REPORT INFORMATION
  Report Type: 
  Country: None (occurrence: None)
  Receive Date: 20040908
  Receipt Date: 20040908
  Transmission Date: 20050211
  Serious: Yes (Life-Threatening, Hospitalization)
  Sender: FDA-Public Use
  Company Number: None

PATIENT
  Age: 74 Year
  Sex: Male
  Weight: 64.9 kg

DRUGS (5)
  1. CAPECITABINE ROCHE [Suspect]
     Indication: COLON CANCER
     Dosage: 1800 BID X 14 DAYS ORAL
     Route: 048
     Dates: start: 20040721, end: 20040830
  2. CAPECITABINE ROCHE [Suspect]
     Indication: METASTASES TO LIVER
     Dosage: 1800 BID X 14 DAYS ORAL
     Route: 048
     Dates: start: 20040721, end: 20040830
  3. ASPIRIN [Concomitant]
  4. TOPROL-XL [Concomitant]
  5. XANAX [Concomitant]

REACTIONS (8)
  - ABDOMINAL PAIN [None]
  - BACK PAIN [None]
  - CHEST PAIN [None]
  - CORONARY ARTERIAL STENT INSERTION [None]
  - NAUSEA [None]
  - PAIN IN EXTREMITY [None]
  - PAIN IN JAW [None]
  - VOMITING [None]
